FAERS Safety Report 5568810-5 (Version None)
Quarter: 2007Q4

REPORT INFORMATION
  Report Type: 
  Country: None (occurrence: None)
  Receive Date: 20071220
  Receipt Date: 20070122
  Transmission Date: 20080405
  Serious: No
  Sender: FDA-Public Use
  Company Number: A0636544A

PATIENT
  Age: 62 Year
  Sex: Male

DRUGS (6)
  1. AVODART [Suspect]
     Indication: DRUG USE FOR UNKNOWN INDICATION
     Dosage: .5MG PER DAY
     Route: 048
     Dates: start: 20051201
  2. FLOMAX [Concomitant]
  3. PLAVIX [Concomitant]
  4. ISOSORBIDE DINITRATE [Concomitant]
  5. ATENOLOL [Concomitant]
  6. DEPAKOTE [Concomitant]

REACTIONS (2)
  - ENURESIS [None]
  - PENILE SIZE REDUCED [None]
